FAERS Safety Report 7116132-3 (Version None)
Quarter: 2010Q4

REPORT INFORMATION
  Report Type: 
  Country: None (occurrence: None)
  Receive Date: 20101122
  Receipt Date: 20101109
  Transmission Date: 20110411
  Serious: Yes (Hospitalization, Other)
  Sender: FDA-Public Use
  Company Number: PHHY2010FR76238

PATIENT
  Sex: Male

DRUGS (8)
  1. EXELON [Suspect]
     Indication: DEMENTIA
     Dosage: 2 DF, DAILY
     Route: 048
     Dates: end: 20101005
  2. PLAVIX [Suspect]
     Indication: PROSTHETIC VESSEL IMPLANTATION
     Dosage: 1 DF DAILY
     Dates: start: 20100414, end: 20101005
  3. PREVISCAN [Suspect]
     Dosage: 3/4 DF DAILY AND 1 DF ON EVEN DAY
     Dates: end: 20101005
  4. KARDEGIC [Suspect]
     Indication: CORONARY ARTERY BYPASS
     Dosage: 1DF DAILY
     Dates: end: 20101005
  5. GAVISCON [Concomitant]
     Dosage: 1 DF, QD
  6. IMOVANE [Concomitant]
     Indication: INSOMNIA
     Dosage: 1 DF QD
  7. IXPRIM [Concomitant]
     Dosage: 1 DF TID
  8. LYRICA [Concomitant]
     Dosage: 1 DF, TID

REACTIONS (14)
  - ANAEMIA [None]
  - BARRETT'S OESOPHAGUS [None]
  - BLOOD PRESSURE DECREASED [None]
  - CARDIOMYOPATHY [None]
  - FAECES DISCOLOURED [None]
  - FALL [None]
  - GASTRITIS [None]
  - GASTROINTESTINAL HAEMORRHAGE [None]
  - HIATUS HERNIA [None]
  - MELAENA [None]
  - OESOPHAGEAL ULCER [None]
  - TACHYCARDIA [None]
  - TROPONIN INCREASED [None]
  - VENTRICULAR TACHYCARDIA [None]
